FAERS Safety Report 5099120-0 (Version None)
Quarter: 2006Q3

REPORT INFORMATION
  Report Type: 
  Country: None (occurrence: None)
  Receive Date: 20060731
  Receipt Date: 20051011
  Transmission Date: 20061208
  Serious: Yes (Hospitalization)
  Sender: FDA-Public Use
  Company Number: 218535

PATIENT
  Age: 40 Year
  Sex: Male

DRUGS (1)
  1. RITUXAN [Suspect]
     Indication: IDIOPATHIC THROMBOCYTOPENIC PURPURA
     Dosage: 350 MG/M2
     Dates: start: 20050914

REACTIONS (3)
  - CHEST PAIN [None]
  - DYSPNOEA [None]
  - LUNG INFILTRATION [None]
